FAERS Safety Report 7162997-9 (Version None)
Quarter: 2010Q4

REPORT INFORMATION
  Report Type: 
  Country: None (occurrence: None)
  Receive Date: 20101215
  Receipt Date: 20100204
  Transmission Date: 20110411
  Serious: Yes (Other)
  Sender: FDA-Public Use
  Company Number: FR-PFIZER INC-2009243381

PATIENT
  Age: 38 Year
  Sex: Female

DRUGS (2)
  1. LYRICA [Suspect]
     Indication: NEURALGIA
     Dosage: 100 MG, 2X/DAY
  2. NORDETTE-21 [Interacting]
     Indication: CONTRACEPTION
     Dosage: UNK

REACTIONS (5)
  - ABORTION INDUCED [None]
  - DRUG EXPOSURE DURING PREGNANCY [None]
  - DRUG INEFFECTIVE [None]
  - DRUG INTERACTION [None]
  - UNINTENDED PREGNANCY [None]
